FAERS Safety Report 18240931 (Version 1)
Quarter: 2020Q3

REPORT INFORMATION
  Report Type: Spontaneous
  Country: US (occurrence: US)
  Receive Date: 20200905
  Receipt Date: 20200905
  Transmission Date: 20201103
  Serious: No
  Sender: FDA-Public Use
  Company Number: None

PATIENT
  Age: 80 Year
  Sex: Female
  Weight: 75.7 kg

DRUGS (15)
  1. ISOSORBIDE DINITRATE 30MG [Concomitant]
  2. NIFEDIPINE 60 MG [Concomitant]
  3. CARVEDILOL 6.25MG [Concomitant]
     Active Substance: CARVEDILOL
  4. FOLIC ACID 1MG [Concomitant]
     Active Substance: FOLIC ACID
  5. MONTELUKAST 10 MG [Concomitant]
     Active Substance: MONTELUKAST SODIUM
  6. VALSARTAN  320 MG [Concomitant]
     Active Substance: VALSARTAN
  7. VITAMIN B1 100MG [Concomitant]
  8. VITAMIN D3 250 MCG [Concomitant]
  9. ANASTRAZOLE 1MG [Concomitant]
     Active Substance: ANASTROZOLE
  10. VERZENIO [Suspect]
     Active Substance: ABEMACICLIB
     Indication: BREAST CANCER
     Route: 048
     Dates: start: 20200630, end: 20200708
  11. ALBUTEROL HFA [Concomitant]
     Active Substance: ALBUTEROL SULFATE
  12. ASPIRIN 81 MG [Concomitant]
     Active Substance: ASPIRIN
  13. LABETELOL 300MG [Concomitant]
  14. FLOVENT DISKUS [Concomitant]
     Active Substance: FLUTICASONE PROPIONATE
  15. FAMOTIDINE 40MG [Concomitant]
     Active Substance: FAMOTIDINE

REACTIONS (2)
  - Vomiting [None]
  - Nausea [None]

NARRATIVE: CASE EVENT DATE: 20200708
